FAERS Safety Report 5187896-3 (Version None)
Quarter: 2006Q4

REPORT INFORMATION
  Report Type: 
  Country: None (occurrence: None)
  Receive Date: 20061221
  Receipt Date: 20061130
  Transmission Date: 20070319
  Serious: Yes (Hospitalization)
  Sender: FDA-Public Use
  Company Number: PHBS2006FI18731

PATIENT
  Age: 59 Year
  Sex: Male

DRUGS (6)
  1. LEPONEX [Suspect]
     Dosage: UNK, UNK
     Dates: start: 20061119, end: 20061209
  2. ZYPREXA [Suspect]
  3. ENALAPRIL MALEATE [Concomitant]
  4. PLAVIX [Concomitant]
     Route: 048
  5. DEPAKENE [Concomitant]
  6. TRILEPTAL [Concomitant]

REACTIONS (15)
  - BILIARY TRACT INFECTION [None]
  - BLOOD TEST ABNORMAL [None]
  - CARDIAC FAILURE [None]
  - COLD SWEAT [None]
  - DYSPNOEA [None]
  - HAEMATOTOXICITY [None]
  - HYPERHIDROSIS [None]
  - MUSCULAR WEAKNESS [None]
  - NAUSEA [None]
  - PNEUMONIA [None]
  - PULMONARY CONGESTION [None]
  - PYREXIA [None]
  - SALIVARY HYPERSECRETION [None]
  - TREMOR [None]
  - VOMITING [None]
